FAERS Safety Report 6813600-6 (Version None)
Quarter: 2010Q3

REPORT INFORMATION
  Report Type: 
  Country: None (occurrence: None)
  Receive Date: 20100701
  Receipt Date: 20100621
  Transmission Date: 20110219
  Serious: Yes (Other)
  Sender: FDA-Public Use
  Company Number: JP-PFIZER INC-2010081724

PATIENT
  Age: 80 Year
  Sex: Female

DRUGS (1)
  1. CELECOX [Suspect]
     Dosage: 400 MG, DAILY
     Route: 048
     Dates: start: 20100517

REACTIONS (2)
  - CHEST PAIN [None]
  - TROPONIN T INCREASED [None]
